FAERS Safety Report 10926760 (Version 1)
Quarter: 2015Q1

REPORT INFORMATION
  Report Type: Spontaneous
  Country: US (occurrence: None)
  Receive Date: 20150316
  Receipt Date: 20150316
  Transmission Date: 20150721
  Serious: Yes (Death)
  Sender: FDA-Public Use
  Company Number: FK201501188

PATIENT

DRUGS (2)
  1. HEPARIN SODIUM (MANUFACTURER UNKNOWN) (HEPARIN SODIUM) (HEPARIN SODIUM) [Suspect]
     Active Substance: HEPARIN SODIUM
     Indication: PRODUCT USED FOR UNKNOWN INDICATION
  2. ARGATROBAN. [Concomitant]
     Active Substance: ARGATROBAN

REACTIONS (2)
  - Cerebral artery thrombosis [None]
  - Heparin-induced thrombocytopenia [None]
